FAERS Safety Report 10422813 (Version 1)
Quarter: 2014Q3

REPORT INFORMATION
  Report Type: Spontaneous
  Country: US (occurrence: US)
  Receive Date: 20140902
  Receipt Date: 20140902
  Transmission Date: 20150326
  Serious: No
  Sender: FDA-Public Use
  Company Number: US-BIOGENIDEC-2014BI088411

PATIENT
  Sex: Female

DRUGS (4)
  1. AVONEX [Suspect]
     Active Substance: INTERFERON BETA-1A
     Indication: MULTIPLE SCLEROSIS
     Route: 030
     Dates: start: 20110509
  2. MULTI-VITAMIN/IRON [Concomitant]
  3. CALCIUM [Concomitant]
     Active Substance: CALCIUM
  4. LEVETIRACETAM ER [Concomitant]

REACTIONS (1)
  - Oedema peripheral [Unknown]
